FAERS Safety Report 10469558 (Version 3)
Quarter: 2014Q4

REPORT INFORMATION
  Report Type: Spontaneous
  Country: US (occurrence: US)
  Receive Date: 20140923
  Receipt Date: 20141215
  Transmission Date: 20150528
  Serious: Yes (Other)
  Sender: FDA-Public Use
  Company Number: US-JNJFOC-20140914190

PATIENT
  Sex: Female

DRUGS (1)
  1. ULTRACET [Suspect]
     Active Substance: ACETAMINOPHEN\TRAMADOL HYDROCHLORIDE
     Indication: PRODUCT USED FOR UNKNOWN INDICATION
     Dosage: STARTED 15 YEARS AGO.
     Route: 048

REACTIONS (10)
  - Product taste abnormal [Unknown]
  - Eye swelling [Unknown]
  - Monoplegia [Unknown]
  - Eye disorder [Unknown]
  - Nausea [Unknown]
  - Vomiting [Unknown]
  - Decreased appetite [Unknown]
  - Hypoaesthesia [Unknown]
  - Product formulation issue [Unknown]
  - Hypersensitivity [Unknown]
